FAERS Safety Report 6278192-1 (Version None)
Quarter: 2009Q3

REPORT INFORMATION
  Report Type: 
  Country: None (occurrence: None)
  Receive Date: 20090722
  Receipt Date: 20090710
  Transmission Date: 20100115
  Serious: Yes (Other)
  Sender: FDA-Public Use
  Company Number: CA-PFIZER INC-2009242215

PATIENT
  Age: 68 Year

DRUGS (2)
  1. NICOTINE [Suspect]
     Indication: SMOKING CESSATION THERAPY
     Dosage: 1 CARTRIDGE A DAY
  2. PLAVIX [Concomitant]
     Route: 065

REACTIONS (7)
  - BURNING SENSATION MUCOSAL [None]
  - GINGIVAL PAIN [None]
  - INFECTION [None]
  - ORAL DISCOMFORT [None]
  - ORAL INFECTION [None]
  - STOMATITIS [None]
  - THROAT IRRITATION [None]
